FAERS Safety Report 8062327-4 (Version None)
Quarter: 2012Q1

REPORT INFORMATION
  Report Type: 
  Country: None (occurrence: None)
  Receive Date: 20120113
  Receipt Date: 20120103
  Transmission Date: 20120608
  Serious: Yes (Congenital Anomaly)
  Sender: FDA-Public Use
  Company Number: 2012P1000689

PATIENT
  Age: 4 Week
  Sex: Female

DRUGS (3)
  1. METHOTREXATE [Suspect]
     Indication: RHEUMATOID ARTHRITIS
     Dosage: 15 MG;QW;TRPL
     Route: 064
  2. HYDROXYCHLOROQUINE SULFATE [Suspect]
     Indication: RHEUMATOID ARTHRITIS
     Dosage: 400 MG;QD;TRPL
     Route: 064
  3. SUPPLEMENTAL FOLATE [Concomitant]

REACTIONS (3)
  - CORNEAL OPACITY [None]
  - ANTERIOR CHAMBER CLEAVAGE SYNDROME [None]
  - MATERNAL DRUGS AFFECTING FOETUS [None]
